FAERS Safety Report 10636130 (Version 1)
Quarter: 2014Q4

REPORT INFORMATION
  Report Type: Report from Study
  Country: US (occurrence: US)
  Receive Date: 20141205
  Receipt Date: 20141205
  Transmission Date: 20150529
  Serious: Yes (Hospitalization)
  Sender: FDA-Public Use
  Company Number: US-GLAXOSMITHKLINE-US2014GSK032081

PATIENT

DRUGS (1)
  1. PAZOPANIB TABLET [Suspect]
     Active Substance: PAZOPANIB
     Indication: CHONDROSARCOMA
     Dosage: 800 MG, QD
     Route: 048
     Dates: start: 20110603

REACTIONS (2)
  - Abdominal pain [Unknown]
  - Hypertension [Unknown]

NARRATIVE: CASE EVENT DATE: 20110612
